FAERS Safety Report 19039930 (Version 1)
Quarter: 2021Q1

REPORT INFORMATION
  Report Type: Spontaneous
  Country: US (occurrence: US)
  Receive Date: 20210322
  Receipt Date: 20210322
  Transmission Date: 20210420
  Serious: Yes (Other)
  Sender: FDA-Public Use
  Company Number: US-TOLMAR, INC.-21US026129

PATIENT
  Age: 52 Year
  Sex: Female

DRUGS (3)
  1. ELIGARD [Suspect]
     Active Substance: LEUPROLIDE ACETATE
     Indication: ADENOMYOSIS
     Dosage: 3.75 MG, Q 1 MONTH
     Route: 030
  2. ESTRADIOL. [Concomitant]
     Active Substance: ESTRADIOL
     Indication: IN VITRO FERTILISATION
     Dosage: 0.1 MG PATCHES EVERY OTHER DAY
     Route: 065
  3. PROGESTERONE. [Concomitant]
     Active Substance: PROGESTERONE
     Indication: PRODUCT USED FOR UNKNOWN INDICATION
     Dosage: 50 MG, QD
     Route: 030

REACTIONS (5)
  - Foetal growth restriction [Unknown]
  - Premature delivery [Unknown]
  - Placenta accreta [Unknown]
  - Pre-eclampsia [Unknown]
  - Off label use [Unknown]
